FAERS Safety Report 4797399-3 (Version None)
Quarter: 2005Q4

REPORT INFORMATION
  Report Type: 
  Country: None (occurrence: None)
  Receive Date: 20051011
  Receipt Date: 20051011
  Transmission Date: 20060501
  Serious: Yes (Life-Threatening)
  Sender: FDA-Public Use
  Company Number: None

PATIENT
  Age: 49 Year
  Sex: Female
  Weight: 153.6 kg

DRUGS (1)
  1. XIGRIS [Suspect]
     Indication: SEPTIC SHOCK
     Dosage: 24 MCG/KG/HOUR-45 MG; Q12H IV DRIP
     Route: 041
     Dates: start: 20050922, end: 20050923

REACTIONS (3)
  - ACCIDENTAL OVERDOSE [None]
  - PLATELET COUNT DECREASED [None]
  - UPPER GASTROINTESTINAL HAEMORRHAGE [None]
